FAERS Safety Report 20512664 (Version 1)
Quarter: 2022Q1

REPORT INFORMATION
  Report Type: Spontaneous
  Country: BR (occurrence: BR)
  Receive Date: 20220224
  Receipt Date: 20220224
  Transmission Date: 20220424
  Serious: Yes (Other)
  Sender: FDA-Public Use
  Company Number: BR-ORGANON-O2202BRA001239

PATIENT
  Age: 67 Year
  Sex: Female
  Weight: 68 kg

DRUGS (2)
  1. REMERON SOLTAB [Suspect]
     Active Substance: MIRTAZAPINE
     Indication: Insomnia
     Dosage: 1 TABLET, QD
     Route: 048
     Dates: start: 2019
  2. REMERON SOLTAB [Suspect]
     Active Substance: MIRTAZAPINE
     Indication: Depression
     Dosage: 1 TABLET, QD
     Route: 048

REACTIONS (10)
  - Parkinson^s disease [Unknown]
  - Blood cholesterol abnormal [Unknown]
  - Thyroid disorder [Unknown]
  - Pain [Unknown]
  - Hypertension [Unknown]
  - Depression [Unknown]
  - Insomnia [Unknown]
  - Product use in unapproved indication [Unknown]
  - Product physical issue [Unknown]
  - Poor quality product administered [Unknown]
